FAERS Safety Report 9358669 (Version 2)
Quarter: 2016Q3

REPORT INFORMATION
  Report Type: Spontaneous
  Country: JP (occurrence: JP)
  Receive Date: 20130620
  Receipt Date: 20160822
  Transmission Date: 20161109
  Serious: Yes (Hospitalization, Other)
  Sender: FDA-Public Use
  Company Number: JP-GLAXOSMITHKLINE-B0894322A

PATIENT
  Age: 17 Year
  Sex: Female

DRUGS (4)
  1. METLIGINE [Concomitant]
     Active Substance: MIDODRINE HYDROCHLORIDE
     Indication: SOMNOLENCE
     Route: 048
     Dates: start: 20120120
  2. LAMOTRIGINE. [Suspect]
     Active Substance: LAMOTRIGINE
     Indication: MOOD SWINGS
     Dosage: 25 MG, QD
     Route: 048
     Dates: start: 20130425, end: 20130507
  3. PAXIL [Concomitant]
     Active Substance: PAROXETINE HYDROCHLORIDE
     Route: 048
     Dates: start: 20120322
  4. PL [Concomitant]
     Active Substance: ACETAMINOPHEN\CAFFEINE\PROMETHAZINE\SALICYLAMIDE
     Indication: PYREXIA
     Route: 048
     Dates: start: 20130502, end: 20130507

REACTIONS (14)
  - Rash maculo-papular [Unknown]
  - Drug eruption [Unknown]
  - Rash generalised [Recovering/Resolving]
  - Oral mucosal erythema [Unknown]
  - Mouth swelling [Unknown]
  - Rubella [Unknown]
  - Erythema of eyelid [Unknown]
  - Rash [Unknown]
  - Ocular hyperaemia [Unknown]
  - Pyrexia [Unknown]
  - Generalised erythema [Unknown]
  - Lip swelling [Unknown]
  - Erythema multiforme [Recovering/Resolving]
  - Cheilitis [Unknown]

NARRATIVE: CASE EVENT DATE: 20130430
